FAERS Safety Report 23318773 (Version 4)
Quarter: 2025Q1

REPORT INFORMATION
  Report Type: Spontaneous
  Country: US (occurrence: US)
  Receive Date: 20231220
  Receipt Date: 20250221
  Transmission Date: 20250408
  Serious: Yes (Hospitalization, Disabling)
  Sender: PFIZER
  Company Number: US-PFIZER INC-PV202300203116

PATIENT
  Age: 77 Year
  Sex: Female

DRUGS (2)
  1. VYNDAMAX [Suspect]
     Active Substance: TAFAMIDIS
     Indication: Acquired ATTR amyloidosis
  2. VYNDAMAX [Suspect]
     Active Substance: TAFAMIDIS
     Indication: Amyloidosis

REACTIONS (6)
  - Illness [Unknown]
  - Gout [Unknown]
  - Mobility decreased [Unknown]
  - Fall [Unknown]
  - Joint swelling [Unknown]
  - Ligament sprain [Unknown]
